FAERS Safety Report 4264856-8 (Version None)
Quarter: 2004Q1

REPORT INFORMATION
  Report Type: 
  Country: None (occurrence: None)
  Receive Date: 20040105
  Receipt Date: 20031219
  Transmission Date: 20041129
  Serious: Yes (Other)
  Sender: FDA-Public Use
  Company Number: STA-AE-03-MTX-207

PATIENT
  Age: 51 Year
  Sex: Male

DRUGS (1)
  1. METHOTREXATE [Suspect]
     Indication: PSORIASIS
     Dosage: 2.5 MG 1 X PER 1 DAY
     Dates: start: 20031207, end: 20031209

REACTIONS (2)
  - DELIRIUM TREMENS [None]
  - HYPERTENSION [None]
